FAERS Safety Report 13234051 (Version 1)
Quarter: 2017Q1

REPORT INFORMATION
  Report Type: Spontaneous
  Country: US (occurrence: US)
  Receive Date: 20170215
  Receipt Date: 20170215
  Transmission Date: 20170428
  Serious: Yes (Death, Hospitalization, Other)
  Sender: FDA-Public Use
  Company Number: US-DRREDDYS-USA/USA/17/0086880

PATIENT
  Age: 29 Year
  Sex: Female

DRUGS (3)
  1. PACLITAXEL. [Suspect]
     Active Substance: PACLITAXEL
     Indication: RENAL CANCER METASTATIC
     Dosage: OVER 21-DAY INTERVALS
     Route: 065
  2. GEMCITABINE [Suspect]
     Active Substance: GEMCITABINE\GEMCITABINE HYDROCHLORIDE
     Indication: RENAL CANCER METASTATIC
     Dosage: OVER 21-DAY INTERVALS
     Route: 065
  3. CISPLATIN. [Suspect]
     Active Substance: CISPLATIN
     Indication: RENAL CANCER METASTATIC
     Dosage: OVER 21-DAY INTERVALS
     Route: 065

REACTIONS (5)
  - Cytopenia [Unknown]
  - Performance status decreased [Unknown]
  - Sepsis [Unknown]
  - Disease progression [Unknown]
  - Death [Fatal]
